FAERS Safety Report 7811068-4 (Version None)
Quarter: 2011Q4

REPORT INFORMATION
  Report Type: 
  Country: None (occurrence: None)
  Receive Date: 20111013
  Receipt Date: 20111006
  Transmission Date: 20120403
  Serious: Yes (Death)
  Sender: FDA-Public Use
  Company Number: US-CELGENEUS-163-21880-11093095

PATIENT
  Sex: Male

DRUGS (5)
  1. OXYCODONE HCL [Concomitant]
     Dosage: 5 MILLIGRAM
     Route: 048
  2. REVLIMID [Suspect]
     Indication: MULTIPLE MYELOMA
     Dosage: 25 MILLIGRAM
     Route: 048
     Dates: start: 20110518, end: 20110101
  3. ACYCLOVIR [Concomitant]
     Dosage: 200 MILLIGRAM
     Route: 048
  4. WARFARIN SODIUM [Concomitant]
     Dosage: 1 MILLIGRAM
     Route: 048
  5. BISMUTH SUBSALICYLATE [Concomitant]
     Dosage: 524/30ML
     Route: 048

REACTIONS (1)
  - DEATH [None]
